FAERS Safety Report 5712216-2 (Version None)
Quarter: 2008Q2

REPORT INFORMATION
  Report Type: 
  Country: None (occurrence: None)
  Receive Date: 20080422
  Receipt Date: 20080408
  Transmission Date: 20081010
  Serious: Yes (Death, Hospitalization, Other)
  Sender: FDA-Public Use
  Company Number: ES-ELI_LILLY_AND_COMPANY-ES200804002036

PATIENT
  Age: 38 Year
  Sex: Male

DRUGS (5)
  1. ZYPREXA [Suspect]
     Indication: SCHIZOPHRENIA, PARANOID TYPE
     Dosage: 10 MG, DAILY (1/D)
     Route: 065
  2. RISPERIDONE [Concomitant]
     Indication: SCHIZOPHRENIA, PARANOID TYPE
     Dosage: 3 MG, DAILY (1/D)
     Route: 065
  3. RISPERIDONE [Concomitant]
     Dosage: 100 MG, BY INJECTION EVERY 15 DAYS
     Route: 065
  4. TOPIRAMATE [Concomitant]
     Indication: SCHIZOPHRENIA, PARANOID TYPE
     Dosage: 600 MG, DAILY (1/D)
     Route: 065
  5. LITHIUM CARBONATE [Concomitant]
     Indication: SCHIZOPHRENIA, PARANOID TYPE
     Dosage: 800 MG, DAILY (1/D)
     Route: 065

REACTIONS (6)
  - DRUG INTERACTION [None]
  - LUNG INFECTION [None]
  - NEUROLEPTIC MALIGNANT SYNDROME [None]
  - PNEUMONIA [None]
  - POLYNEUROPATHY [None]
  - PSYCHOTIC DISORDER [None]
